FAERS Safety Report 16254820 (Version 2)
Quarter: 2019Q3

REPORT INFORMATION
  Report Type: Spontaneous
  Country: FR (occurrence: FR)
  Receive Date: 20190430
  Receipt Date: 20190823
  Transmission Date: 20191004
  Serious: Yes (Death, Other)
  Sender: FDA-Public Use
  Company Number: FR-AUROBINDO-AUR-APL-2019-024573

PATIENT

DRUGS (7)
  1. TERCIAN [Suspect]
     Active Substance: CYAMEMAZINE
     Indication: BURNOUT SYNDROME
     Dosage: 2 DOSAGE FORM, ONCE A DAY
     Route: 048
     Dates: start: 201812
  2. LORMETAZEPAM [Suspect]
     Active Substance: LORMETAZEPAM
     Indication: BURNOUT SYNDROME
     Dosage: 1 DOSAGE FORM, ONCE A DAY
     Route: 048
     Dates: start: 201812
  3. DECONTRACTYL (MEPHENESIN) [Suspect]
     Active Substance: MEPHENESIN
     Indication: NECK PAIN
     Dosage: 1 TO 2 BOXES UP TO 5 ACCORDING TO THE ENTOURAGE
     Route: 048
     Dates: start: 2012
  4. PRAZEPAM [Suspect]
     Active Substance: PRAZEPAM
     Indication: BURNOUT SYNDROME
     Dosage: 3 DOSAGE FORM, ONCE A DAY
     Route: 048
     Dates: start: 201812
  5. VENLAFAXINE [Suspect]
     Active Substance: VENLAFAXINE HYDROCHLORIDE
     Indication: BURNOUT SYNDROME
     Dosage: 3 DOSAGE FORM, ONCE A DAY
     Route: 048
     Dates: start: 201812
  6. TIAPRIDE [Suspect]
     Active Substance: TIAPRIDE
     Indication: PRODUCT USED FOR UNKNOWN INDICATION
     Dosage: UNK
     Route: 048
  7. THERALENE [Suspect]
     Active Substance: TRIMEPRAZINE
     Indication: BURNOUT SYNDROME
     Dosage: 30 GTT DROPS, ONCE A DAY
     Route: 048
     Dates: start: 201812

REACTIONS (5)
  - Depressed level of consciousness [Fatal]
  - Respiratory depression [Fatal]
  - Aspiration [Fatal]
  - Death [Fatal]
  - Poisoning deliberate [Fatal]

NARRATIVE: CASE EVENT DATE: 20190414
